FAERS Safety Report 4451180-3 (Version None)
Quarter: 2004Q3

REPORT INFORMATION
  Report Type: 
  Country: None (occurrence: None)
  Receive Date: 20040913
  Receipt Date: 20040702
  Transmission Date: 20050211
  Serious: No
  Sender: FDA-Public Use
  Company Number: 2004-BP-05356BP(0)

PATIENT
  Age: 83 Year
  Sex: Female

DRUGS (11)
  1. SPIRIVA [Suspect]
     Indication: CHRONIC OBSTRUCTIVE AIRWAYS DISEASE
     Dosage: 19 MCG (18 MCG), IH
     Route: 055
     Dates: start: 20040701
  2. SPIRIVA [Suspect]
     Indication: EMPHYSEMA
     Dosage: 19 MCG (18 MCG), IH
     Route: 055
     Dates: start: 20040701
  3. ATROVENT [Concomitant]
  4. ALBUTEROL [Concomitant]
  5. BUDESONIDE (BUDESONIDE) [Concomitant]
  6. DIGOXIN [Concomitant]
  7. ZOLOFT [Concomitant]
  8. SYNTHROID [Concomitant]
  9. ASACOL [Concomitant]
  10. VITAMIN (VITAMINS) [Concomitant]
  11. CALCIUM (CALCIUM [Concomitant]

REACTIONS (1)
  - DYSPNOEA [None]
